FAERS Safety Report 23796933 (Version 1)
Quarter: 2024Q2

REPORT INFORMATION
  Report Type: Spontaneous
  Country: FR (occurrence: FR)
  Receive Date: 20240430
  Receipt Date: 20240430
  Transmission Date: 20240716
  Serious: Yes (Death)
  Sender: FDA-Public Use
  Company Number: None

PATIENT
  Age: 49 Year
  Sex: Male

DRUGS (5)
  1. OLANZAPINE [Suspect]
     Active Substance: OLANZAPINE
  2. BUPRENORPHINE [Suspect]
     Active Substance: BUPRENORPHINE
  3. COCAINE [Suspect]
     Active Substance: COCAINE
  4. DIAZEPAM [Suspect]
     Active Substance: DIAZEPAM
  5. CANNABIS SATIVA SUBSP. INDICA TOP [Suspect]
     Active Substance: CANNABIS SATIVA SUBSP. INDICA TOP

REACTIONS (2)
  - Traumatic coma [Fatal]
  - Drug use disorder [Fatal]

NARRATIVE: CASE EVENT DATE: 20240131
